FAERS Safety Report 9490510 (Version 1)
Quarter: 2013Q3

REPORT INFORMATION
  Report Type: Spontaneous
  Country: SE (occurrence: SE)
  Receive Date: 20130830
  Receipt Date: 20130830
  Transmission Date: 20140515
  Serious: Yes (Other)
  Sender: FDA-Public Use
  Company Number: SE-GE HEALTHCARE MEDICAL DIAGNOSTICS-OMPQ-PR-1308L-1052

PATIENT
  Age: 76 Year
  Sex: Male

DRUGS (2)
  1. OMNIPAQUE [Suspect]
     Indication: PRODUCT USED FOR UNKNOWN INDICATION
     Route: 042
  2. OMNIPAQUE [Suspect]
     Indication: DIAGNOSTIC PROCEDURE
     Route: 042

REACTIONS (1)
  - Hyperthyroidism [Recovered/Resolved]
